FAERS Safety Report 11315713 (Version 1)
Quarter: 2015Q3

REPORT INFORMATION
  Report Type: Spontaneous
  Country: US (occurrence: None)
  Receive Date: 20150724
  Receipt Date: 20150724
  Transmission Date: 20151125
  Serious: Yes (Hospitalization)
  Sender: FDA-Public Use
  Company Number: None

PATIENT
  Age: 31 Year
  Sex: Male
  Weight: 64 kg

DRUGS (4)
  1. STRIBILD (ELVITEGRAVIR/COBICISTAT/EMTRICITABINE/TENOFOVIR) [Concomitant]
  2. TIVICAY [Concomitant]
     Active Substance: DOLUTEGRAVIR SODIUM
  3. DOLUTEGRAVIR [Suspect]
     Active Substance: DOLUTEGRAVIR
     Indication: HIV INFECTION
     Dosage: 1 PILL QD ORAL
     Route: 048
     Dates: start: 20140201, end: 20140512
  4. TRUVADA (EMTRICITABINE/TENOFOVIR) [Concomitant]

REACTIONS (1)
  - Jaundice cholestatic [None]

NARRATIVE: CASE EVENT DATE: 20140512
